FAERS Safety Report 8120843-0 (Version None)
Quarter: 2012Q1

REPORT INFORMATION
  Report Type: 
  Country: None (occurrence: None)
  Receive Date: 20120208
  Receipt Date: 20120130
  Transmission Date: 20120608
  Serious: Yes (Other)
  Sender: FDA-Public Use
  Company Number: BR-AMGEN-BRASP2012007434

PATIENT
  Age: 70 Year
  Sex: Female
  Weight: 60 kg

DRUGS (10)
  1. ENDOFOLIN [Concomitant]
     Dosage: 5 MG, UNK
  2. SYNTHROID [Concomitant]
     Dosage: 137 MG, UNK
  3. ENBREL [Suspect]
     Indication: RHEUMATOID ARTHRITIS
     Dosage: 25 MG, 2X/WEEK
     Route: 058
     Dates: start: 20080301
  4. CARISOPRODOL [Concomitant]
     Dosage: 126 MG, UNK
  5. PROPAFENONE HCL [Concomitant]
     Dosage: 300 MG, UNK
  6. ACETAMINOPHEN [Concomitant]
     Dosage: 400 MG, UNK
  7. FAMOTIDINE [Concomitant]
     Dosage: 20 MG, UNK
  8. SIMVASTATIN [Concomitant]
     Dosage: 20 MG, UNK
  9. LOSARTAN POTASSIUM [Concomitant]
     Dosage: 100-25 MG, UNK
  10. MELOXICAM [Concomitant]
     Dosage: 15 MG, UNK

REACTIONS (1)
  - LUNG DISORDER [None]
